FAERS Safety Report 4323433-0 (Version None)
Quarter: 2004Q1

REPORT INFORMATION
  Report Type: 
  Country: None (occurrence: None)
  Receive Date: 20040322
  Receipt Date: 20040312
  Transmission Date: 20041129
  Serious: Yes (Death)
  Sender: FDA-Public Use
  Company Number: 2004-02-1848

PATIENT
  Age: 33 Year
  Sex: Female

DRUGS (8)
  1. INTRON A [Suspect]
     Dosage: 1.7 MIU 5XWK
     Dates: start: 20010701, end: 20030501
  2. INSULIN [Concomitant]
  3. VITAMINS/MINERALS/DIETARY SUPPLEMENTS (NOS) [Concomitant]
  4. ZOFRAN [Concomitant]
  5. ANALGESIC (NOS) [Concomitant]
  6. METHADONE [Concomitant]
  7. PREDNISONE [Concomitant]
  8. THYROID TAB [Concomitant]

REACTIONS (2)
  - HAEMODIALYSIS [None]
  - MYOCARDIAL INFARCTION [None]
